FAERS Safety Report 16377771 (Version 1)
Quarter: 2019Q2

REPORT INFORMATION
  Report Type: Report from Study
  Country: BR (occurrence: BR)
  Receive Date: 20190531
  Receipt Date: 20190531
  Transmission Date: 20190711
  Serious: Yes (Other)
  Sender: FDA-Public Use
  Company Number: PHHY2018BR063338

PATIENT
  Age: 51 Year
  Sex: Male
  Weight: 67 kg

DRUGS (2)
  1. COSENTYX [Suspect]
     Active Substance: SECUKINUMAB
     Dosage: 1 DF (AMPOULE), QMO
     Route: 058
  2. COSENTYX [Suspect]
     Active Substance: SECUKINUMAB
     Indication: ANKYLOSING SPONDYLITIS
     Dosage: 150 MG, QW (FOR 5 WEEKS)
     Route: 058
     Dates: start: 20180724

REACTIONS (10)
  - Headache [Recovered/Resolved]
  - Neck pain [Recovered/Resolved]
  - Accidental exposure to product [Unknown]
  - Influenza [Recovering/Resolving]
  - Pyrexia [Recovered/Resolved]
  - Spinal pain [Not Recovered/Not Resolved]
  - Cough [Recovering/Resolving]
  - Back pain [Not Recovered/Not Resolved]
  - Pain in extremity [Recovered/Resolved]
  - Pruritus [Recovered/Resolved]

NARRATIVE: CASE EVENT DATE: 20180727
